FAERS Safety Report 5879298-9 (Version None)
Quarter: 2008Q3

REPORT INFORMATION
  Report Type: 
  Country: None (occurrence: None)
  Receive Date: 20080912
  Receipt Date: 20080905
  Transmission Date: 20090109
  Serious: Yes (Hospitalization)
  Sender: FDA-Public Use
  Company Number: CA-ASTRAZENECA-2008UW18197

PATIENT
  Age: 75 Year
  Sex: Male
  Weight: 76 kg

DRUGS (8)
  1. METOPROLOL TARTRATE [Suspect]
     Route: 048
     Dates: start: 20060707, end: 20061025
  2. SUNITINIB MALATE [Suspect]
     Indication: GASTROINTESTINAL STROMAL TUMOUR
     Dosage: 50 MG OD: 4 WEEKS ON / 2WEEKS OFF
     Route: 048
     Dates: start: 20060607
  3. CODEINE SUL TAB [Concomitant]
  4. AVAPRO [Concomitant]
  5. MULTI-VITAMINS [Concomitant]
     Route: 048
     Dates: start: 20030101
  6. VITAMIN D [Concomitant]
  7. FISH OIL [Concomitant]
  8. RABEPRAZOLE SODIUM [Concomitant]
     Route: 048
     Dates: start: 20060726

REACTIONS (3)
  - BRADYCARDIA [None]
  - HYPERTENSION [None]
  - RENAL FAILURE ACUTE [None]
